FAERS Safety Report 4317454-1 (Version None)
Quarter: 2004Q1

REPORT INFORMATION
  Report Type: 
  Country: None (occurrence: None)
  Receive Date: 20040312
  Receipt Date: 20040225
  Transmission Date: 20041129
  Serious: Yes (Hospitalization)
  Sender: FDA-Public Use
  Company Number: 2004-CN-00042CN(1)

PATIENT
  Age: 60 Year
  Sex: Female

DRUGS (5)
  1. MICARDIS [Suspect]
     Indication: HYPERTENSION
     Dosage: 80 MG (NR) PO
     Route: 048
     Dates: start: 20030501
  2. LOSEC (OMEPRAZOLE) (TA) [Concomitant]
  3. GLUCOSAMINE (GLUCOSAMINE) (TA) [Concomitant]
  4. CALCIUM WITH VITAMIN D (CALCIUM WITH VITAMIN D) (TA) [Concomitant]
  5. CELEBREX (TA) [Concomitant]

REACTIONS (5)
  - BLOOD PRESSURE DECREASED [None]
  - HYPERHIDROSIS [None]
  - LOSS OF CONSCIOUSNESS [None]
  - SYNCOPE [None]
  - TRANSIENT ISCHAEMIC ATTACK [None]
